FAERS Safety Report 23156341 (Version 1)
Quarter: 2023Q4

REPORT INFORMATION
  Report Type: Report from Study
  Country: TR (occurrence: TR)
  Receive Date: 20231107
  Receipt Date: 20231107
  Transmission Date: 20240110
  Serious: Yes (Other)
  Sender: FDA-Public Use
  Company Number: TR-AUROBINDO-AUR-APL-2023-067135

PATIENT

DRUGS (4)
  1. MELPHALAN [Suspect]
     Active Substance: MELPHALAN
     Indication: Lymphoma
     Dosage: 140 MILLIGRAM/SQ. METER (ON DAY -2)
     Route: 065
  2. ETOPOSIDE [Suspect]
     Active Substance: ETOPOSIDE
     Indication: Lymphoma
     Dosage: 100 MILLIGRAM/SQ. METER (2 ? 100MG/M2  ON DAY-6 TO -3)
     Route: 065
  3. CYTARABINE [Suspect]
     Active Substance: CYTARABINE
     Indication: Lymphoma
     Dosage: 200 MILLIGRAM/SQ. METER (2 ? 200MG/M2 ON DAY -6 TO -3)
     Route: 065
  4. THIOTEPA [Suspect]
     Active Substance: THIOTEPA
     Indication: Lymphoma
     Dosage: UNK
     Route: 065

REACTIONS (1)
  - Influenza [Unknown]
